FAERS Safety Report 8109703-9 (Version None)
Quarter: 2012Q1

REPORT INFORMATION
  Report Type: 
  Country: None (occurrence: None)
  Receive Date: 20120202
  Receipt Date: 20120118
  Transmission Date: 20120608
  Serious: No
  Sender: FDA-Public Use
  Company Number: US-AMGEN-USASP2012003695

PATIENT
  Sex: Female

DRUGS (1)
  1. ENBREL [Suspect]
     Indication: ANKYLOSING SPONDYLITIS
     Dosage: 25 MG, QWK
     Dates: start: 20080101

REACTIONS (8)
  - PAIN IN EXTREMITY [None]
  - INJECTION SITE ERYTHEMA [None]
  - INJECTION SITE PRURITUS [None]
  - OEDEMA PERIPHERAL [None]
  - LYMPHADENOPATHY [None]
  - WOUND INFECTION [None]
  - ARTHRALGIA [None]
  - INJECTION SITE SWELLING [None]
